FAERS Safety Report 11982843 (Version 2)
Quarter: 2017Q4

REPORT INFORMATION
  Report Type: Spontaneous
  Country: PT (occurrence: PT)
  Receive Date: 20160201
  Receipt Date: 20171215
  Transmission Date: 20180320
  Serious: Yes (Other)
  Sender: FDA-Public Use
  Company Number: PT-TEVA-631007ISR

PATIENT
  Age: 54 Year
  Sex: Female

DRUGS (5)
  1. OXALIPLATINO ACTAVIS 5 MG/ML [Suspect]
     Active Substance: OXALIPLATIN
     Indication: COLORECTAL CANCER
     Dosage: 85 MG/M2 DAILY; CYCLICAL
     Route: 042
  2. LOPRAZOLAM [Concomitant]
     Active Substance: LOPRAZOLAM
  3. FOLINIC ACID [Concomitant]
     Active Substance: LEUCOVORIN
     Indication: COLORECTAL CANCER
  4. FLUOROURACIL. [Concomitant]
     Active Substance: FLUOROURACIL
     Indication: COLORECTAL CANCER
  5. METOCLOPRAMIDE. [Concomitant]
     Active Substance: METOCLOPRAMIDE

REACTIONS (6)
  - Ocular toxicity [Recovered/Resolved]
  - Vomiting [Unknown]
  - Headache [Unknown]
  - Intracranial pressure increased [Recovered/Resolved]
  - Visual impairment [Recovered/Resolved]
  - Nausea [Unknown]
